FAERS Safety Report 12181749 (Version 2)
Quarter: 2017Q2

REPORT INFORMATION
  Report Type: Spontaneous
  Country: TR (occurrence: TR)
  Receive Date: 20160315
  Receipt Date: 20170414
  Transmission Date: 20170830
  Serious: Yes (Hospitalization)
  Sender: FDA-Public Use
  Company Number: TR-BAXTER-2015BAX052389

PATIENT
  Age: 16 Year
  Sex: Female

DRUGS (7)
  1. INSULIN [Concomitant]
     Active Substance: INSULIN NOS
     Dosage: 0.1 U/KG/DOSE
     Route: 065
  2. NORMAL SALINE [Concomitant]
     Active Substance: SODIUM CHLORIDE
     Indication: DIABETIC KETOACIDOSIS
     Dosage: 10 CC/KG/DOSE IN AN HOUR
     Route: 042
  3. NORMAL SALINE [Concomitant]
     Active Substance: SODIUM CHLORIDE
     Dosage: REDUCED BY ONE-THIRD
     Route: 065
  4. NORMAL SALINE [Concomitant]
     Active Substance: SODIUM CHLORIDE
     Route: 065
  5. INSULIN [Concomitant]
     Active Substance: INSULIN NOS
     Indication: DIABETES MELLITUS
     Route: 065
  6. %20 MANNITOL SOL?SYON CAM [Suspect]
     Active Substance: MANNITOL
     Indication: BRAIN OEDEMA
     Dosage: 1 G/KG DOSE
     Route: 065
  7. NORMAL SALINE [Concomitant]
     Active Substance: SODIUM CHLORIDE
     Dosage: 6 ML/KG TOTAL
     Route: 040

REACTIONS (2)
  - Iatrogenic injury [Recovered/Resolved]
  - Acute kidney injury [Recovered/Resolved]
